FAERS Safety Report 18878249 (Version 1)
Quarter: 2021Q1

REPORT INFORMATION
  Report Type: Spontaneous
  Country: US (occurrence: US)
  Receive Date: 20210210
  Receipt Date: 20210210
  Transmission Date: 20210420
  Serious: No
  Sender: FDA-Public Use
  Company Number: None

PATIENT
  Age: 63 Year
  Sex: Female
  Weight: 112 kg

DRUGS (1)
  1. ERENUMAB?AOOE 70MG/ML [Suspect]
     Active Substance: ERENUMAB-AOOE
     Indication: MIGRAINE
     Dosage: ?          OTHER FREQUENCY:OTHER;?
     Route: 058
     Dates: start: 20201020, end: 20210204

REACTIONS (2)
  - Therapy interrupted [None]
  - Constipation [None]

NARRATIVE: CASE EVENT DATE: 20210204
